FAERS Safety Report 11984737 (Version 1)
Quarter: 2016Q1

REPORT INFORMATION
  Report Type: Spontaneous
  Country: US (occurrence: US)
  Receive Date: 20160201
  Receipt Date: 20160201
  Transmission Date: 20160526
  Serious: Yes (Life-Threatening, Hospitalization)
  Sender: FDA-Public Use
  Company Number: US-TEVA-630362USA

PATIENT
  Age: 19 Year
  Sex: Female
  Weight: 89 kg

DRUGS (26)
  1. FLUDARABINE [Concomitant]
     Active Substance: FLUDARABINE PHOSPHATE
     Indication: ACUTE MYELOID LEUKAEMIA
     Dosage: 62 MG, Q24
     Route: 042
     Dates: start: 20151105, end: 20151109
  2. AZACITIDINE. [Concomitant]
     Active Substance: AZACITIDINE
     Indication: ACUTE MYELOID LEUKAEMIA
     Dosage: 155 MG, Q24
     Route: 042
     Dates: start: 20151030, end: 20151103
  3. GEMTUZUMAB OZOGAMICIN [Concomitant]
     Active Substance: GEMTUZUMAB OZOGAMICIN
     Indication: ACUTE MYELOID LEUKAEMIA
     Dosage: 6.2 MG GIVEN 1 DOSE
     Route: 042
     Dates: start: 20151110, end: 20151110
  4. GABAPENTIN. [Concomitant]
     Active Substance: GABAPENTIN
  5. INFLUENZA VIRUS VACCINE INACIVATED [Concomitant]
  6. DAUNORUBICIN [Suspect]
     Active Substance: DAUNORUBICIN
     Indication: ACUTE MYELOID LEUKAEMIA
     Dosage: 100 MG, Q48H
     Route: 042
     Dates: start: 20151105, end: 20151110
  7. CARVEDILOL. [Concomitant]
     Active Substance: CARVEDILOL
  8. ACYCLOVIR. [Concomitant]
     Active Substance: ACYCLOVIR
  9. HYDROCORTISONE. [Concomitant]
     Active Substance: HYDROCORTISONE
  10. SULFAMETHOXAZOLE AND TRIMETHOPRIM [Concomitant]
     Active Substance: SULFAMETHOXAZOLE\TRIMETHOPRIM
  11. ACETAMINOPHEN. [Concomitant]
     Active Substance: ACETAMINOPHEN
  12. OXYCODONE [Concomitant]
     Active Substance: OXYCODONE
  13. METRONIDAZOLE. [Concomitant]
     Active Substance: METRONIDAZOLE
  14. POTASSIUM CHLORIDE. [Concomitant]
     Active Substance: POTASSIUM CHLORIDE
  15. CEFTRIAXONE. [Concomitant]
     Active Substance: CEFTRIAXONE
  16. RANITIDINE [Concomitant]
     Active Substance: RANITIDINE\RANITIDINE HYDROCHLORIDE
  17. METHYLPREDNISOLONE. [Concomitant]
     Active Substance: METHYLPREDNISOLONE
  18. CYTARABINE. [Concomitant]
     Active Substance: CYTARABINE
     Indication: ACUTE MYELOID LEUKAEMIA
     Dosage: 4140 MG, Q24
     Route: 042
     Dates: start: 20151105, end: 20151109
  19. BENADRYL [Concomitant]
     Active Substance: DIPHENHYDRAMINE HYDROCHLORIDE
  20. SCOPOLAMINE [Concomitant]
     Active Substance: SCOPOLAMINE
  21. FILGRASTIM [Concomitant]
     Active Substance: FILGRASTIM
  22. FLUCONAZOLE. [Concomitant]
     Active Substance: FLUCONAZOLE
  23. KYTRIL [Concomitant]
     Active Substance: GRANISETRON HYDROCHLORIDE
  24. ENALAPRIL [Concomitant]
     Active Substance: ENALAPRIL
  25. FAMOTIDINE. [Concomitant]
     Active Substance: FAMOTIDINE
  26. LORAZEPAM. [Concomitant]
     Active Substance: LORAZEPAM

REACTIONS (1)
  - Septic shock [Recovered/Resolved]

NARRATIVE: CASE EVENT DATE: 20151115
